FAERS Safety Report 5647150-X (Version None)
Quarter: 2008Q1

REPORT INFORMATION
  Report Type: 
  Country: None (occurrence: None)
  Receive Date: 20080303
  Receipt Date: 20080225
  Transmission Date: 20080703
  Serious: Yes (Hospitalization, Other)
  Sender: FDA-Public Use
  Company Number: US-MERCK-0708USA00152

PATIENT
  Age: 51 Year
  Sex: Female
  Weight: 64 kg

DRUGS (3)
  1. FOSAMAX [Suspect]
     Indication: OSTEOPOROSIS
     Route: 048
     Dates: start: 19990901, end: 20031101
  2. FOSAMAX [Suspect]
     Route: 048
     Dates: start: 20031113, end: 20050717
  3. HORMONES (UNSPECIFIED) [Concomitant]
     Route: 065

REACTIONS (22)
  - ANXIETY [None]
  - ARTHRITIS [None]
  - ARTHROPOD BITE [None]
  - BACK PAIN [None]
  - CHEST PAIN [None]
  - CYSTITIS INTERSTITIAL [None]
  - DEPRESSION [None]
  - DERMATITIS BULLOUS [None]
  - DYSPEPSIA [None]
  - FOOT FRACTURE [None]
  - GASTROOESOPHAGEAL REFLUX DISEASE [None]
  - HAND FRACTURE [None]
  - LUMBAR RADICULOPATHY [None]
  - MUSCULOSKELETAL STIFFNESS [None]
  - MYOCARDIAL INFARCTION [None]
  - OSTEOARTHRITIS [None]
  - OSTEOMYELITIS [None]
  - OSTEONECROSIS [None]
  - PHARYNGOLARYNGEAL PAIN [None]
  - SPINAL OSTEOARTHRITIS [None]
  - STRESS URINARY INCONTINENCE [None]
  - URGE INCONTINENCE [None]
